FAERS Safety Report 5688677-4 (Version None)
Quarter: 2008Q1

REPORT INFORMATION
  Report Type: 
  Country: None (occurrence: None)
  Receive Date: 20080328
  Receipt Date: 20080328
  Transmission Date: 20080703
  Serious: Yes (Other)
  Sender: FDA-Public Use
  Company Number: None

PATIENT
  Age: 3 Year
  Sex: Male

DRUGS (1)
  1. SINGULAIR [Suspect]
     Indication: ASTHMA
     Dosage: 1 CHEWABLE TABLET DAILY PO
     Route: 048

REACTIONS (5)
  - AGGRESSION [None]
  - ANXIETY [None]
  - HYPERSENSITIVITY [None]
  - MOOD SWINGS [None]
  - PANIC ATTACK [None]
